FAERS Safety Report 8615669-5 (Version None)
Quarter: 2012Q3

REPORT INFORMATION
  Report Type: 
  Country: None (occurrence: None)
  Receive Date: 20120823
  Receipt Date: 20120814
  Transmission Date: 20120928
  Serious: Yes (Other)
  Sender: FDA-Public Use
  Company Number: US-JNJFOC-20120313387

PATIENT
  Sex: Male
  Weight: 99.79 kg

DRUGS (6)
  1. CYMBALTA [Concomitant]
     Route: 065
  2. UNSPECIFIED NARCOTIC [Concomitant]
     Indication: PAIN
     Route: 062
  3. REMICADE [Suspect]
     Indication: PRODUCT USED FOR UNKNOWN INDICATION
     Dosage: ABOUT THE 5TH INFUSION
     Route: 042
     Dates: start: 20111001
  4. ANDROGEL [Concomitant]
     Route: 065
  5. REMICADE [Suspect]
     Route: 042
     Dates: start: 20110101
  6. MS CONTIN [Concomitant]
     Route: 065

REACTIONS (12)
  - DECREASED APPETITE [None]
  - DYSPNOEA [None]
  - ASTHENIA [None]
  - FATIGUE [None]
  - PRESYNCOPE [None]
  - BLOOD TESTOSTERONE DECREASED [None]
  - INFUSION RELATED REACTION [None]
  - FEELING ABNORMAL [None]
  - VISION BLURRED [None]
  - INSOMNIA [None]
  - FLUSHING [None]
  - THROAT TIGHTNESS [None]
